FAERS Safety Report 14574797 (Version 1)
Quarter: 2018Q1

REPORT INFORMATION
  Report Type: Spontaneous
  Country: US (occurrence: US)
  Receive Date: 20180227
  Receipt Date: 20180227
  Transmission Date: 20180509
  Serious: Yes (Other)
  Sender: FDA-Public Use
  Company Number: US-ROCHE-1974430

PATIENT
  Age: 25 Year
  Sex: Female

DRUGS (3)
  1. XOLAIR [Suspect]
     Active Substance: OMALIZUMAB
     Indication: ASTHMA
     Dosage: 150MGS EACH ARM TOTALING 300MGS EVERY 28 DAYS ;ONGOING: YES
     Route: 058
     Dates: start: 2011
  2. RESCUE INHALER (UNK INGREDIENTS) [Concomitant]
     Indication: DYSPNOEA
     Route: 065
     Dates: start: 20170803
  3. RESCUE INHALER (UNK INGREDIENTS) [Concomitant]
     Indication: WHEEZING

REACTIONS (3)
  - Wheezing [Recovered/Resolved]
  - Urticaria [Unknown]
  - Dyspnoea [Recovered/Resolved]

NARRATIVE: CASE EVENT DATE: 201705
